FAERS Safety Report 9323843 (Version 2)
Quarter: 2013Q2

REPORT INFORMATION
  Report Type: Spontaneous
  Country: CN (occurrence: CN)
  Receive Date: 20130603
  Receipt Date: 20130613
  Transmission Date: 20140414
  Serious: Yes (Other)
  Sender: FDA-Public Use
  Company Number: CN-PFIZER INC-2013165774

PATIENT
  Age: 70 Year
  Sex: Female
  Weight: 60 kg

DRUGS (3)
  1. MS CONTIN [Suspect]
     Indication: ANALGESIC THERAPY
     Dosage: 15 MG, DAILY
     Route: 048
  2. MS CONTIN [Suspect]
     Indication: BLADDER CANCER
     Dosage: 30 MG, 2X/DAY
     Route: 048
     Dates: start: 20091014, end: 20091015
  3. MS CONTIN [Suspect]
     Indication: METASTASIS

REACTIONS (4)
  - Delirium [Recovered/Resolved]
  - Speech disorder [Recovered/Resolved]
  - Insomnia [Recovered/Resolved]
  - Restlessness [Recovered/Resolved]
